FAERS Safety Report 12373194 (Version 13)
Quarter: 2017Q3

REPORT INFORMATION
  Report Type: Spontaneous
  Country: US (occurrence: US)
  Receive Date: 20160516
  Receipt Date: 20170905
  Transmission Date: 20171127
  Serious: Yes (Hospitalization)
  Sender: FDA-Public Use
  Company Number: US-ACTELION-A-NJ2016-135656

PATIENT
  Age: 4 Year
  Sex: Female
  Weight: 18.14 kg

DRUGS (4)
  1. REVATIO [Concomitant]
     Active Substance: SILDENAFIL CITRATE
  2. VELETRI [Suspect]
     Active Substance: EPOPROSTENOL
     Indication: PULMONARY HYPERTENSION
     Dosage: 81 NG/KG, PER MIN
     Route: 042
     Dates: start: 20160408
  3. VELETRI [Suspect]
     Active Substance: EPOPROSTENOL
     Dosage: 90 NG/KG/MIN
     Route: 042
     Dates: start: 20161020
  4. VELETRI [Suspect]
     Active Substance: EPOPROSTENOL
     Dosage: 74 NG/KG, PER MIN
     Route: 042

REACTIONS (15)
  - Tonsillectomy [Unknown]
  - Catheter management [Unknown]
  - Food intolerance [Unknown]
  - Ear tube insertion [Unknown]
  - Product solubility abnormal [Unknown]
  - Pain in extremity [Unknown]
  - Burning sensation [Unknown]
  - Tinnitus [Unknown]
  - Toothache [Unknown]
  - Catheter site infection [Unknown]
  - Headache [Unknown]
  - Feeling abnormal [Unknown]
  - Pharyngitis streptococcal [Unknown]
  - Oxygen saturation decreased [Unknown]
  - Middle ear effusion [Unknown]
